FAERS Safety Report 22222788 (Version 1)
Quarter: 2023Q2

REPORT INFORMATION
  Report Type: Report from Study
  Country: CN (occurrence: CN)
  Receive Date: 20230418
  Receipt Date: 20230418
  Transmission Date: 20230722
  Serious: Yes (Other)
  Sender: FDA-Public Use
  Company Number: CN-Accord-308535

PATIENT

DRUGS (6)
  1. ETOPOSIDE [Suspect]
     Active Substance: ETOPOSIDE
     Indication: Peripheral T-cell lymphoma unspecified
     Dosage: 100 MG/M2 INTRAVENOUSLY ON DAYS 1-3
  2. CYCLOPHOSPHAMIDE [Suspect]
     Active Substance: CYCLOPHOSPHAMIDE
     Indication: Peripheral T-cell lymphoma unspecified
     Dosage: 750 MG/ M2 INTRAVENOUSLY ON DAY 1
  3. EPIRUBICIN [Suspect]
     Active Substance: EPIRUBICIN
     Indication: Peripheral T-cell lymphoma unspecified
     Dosage: 70 MG/M2 INTRAVENOUSLY ON DAY 1
  4. VINDESINE [Suspect]
     Active Substance: VINDESINE
     Indication: Peripheral T-cell lymphoma unspecified
     Dosage: 4 MG INTRAVENOUSLY ON DAY 1
  5. PREDNISONE [Suspect]
     Active Substance: PREDNISONE
     Indication: Peripheral T-cell lymphoma unspecified
     Dosage: 60 MG/M2 ORALLY ON DAYS 1-5
     Route: 048
  6. TUCIDINOSTAT [Suspect]
     Active Substance: TUCIDINOSTAT
     Indication: Peripheral T-cell lymphoma unspecified
     Dosage: 20 MG TWICE WEEKLY

REACTIONS (1)
  - Pneumocystis jirovecii pneumonia [Unknown]
